FAERS Safety Report 19376366 (Version 1)
Quarter: 2021Q2

REPORT INFORMATION
  Report Type: Spontaneous
  Country: US (occurrence: US)
  Receive Date: 20210604
  Receipt Date: 20210604
  Transmission Date: 20210717
  Serious: No
  Sender: FDA-Public Use
  Company Number: US-THERAPEUTICSMD-2021TMD01502

PATIENT
  Sex: Female

DRUGS (1)
  1. ANNOVERA [Suspect]
     Active Substance: ETHINYL ESTRADIOL\SEGESTERONE ACETATE
     Dosage: 1 RING, INSERT FOR 3 WEEKS THEN REMOVE FOR 1 WEEK, REPEAT FOR 13 CYCLES
     Route: 067
     Dates: start: 202009

REACTIONS (1)
  - Medical device site dysaesthesia [Recovered/Resolved]
